FAERS Safety Report 9513932 (Version 1)
Quarter: 2013Q3

REPORT INFORMATION
  Report Type: Spontaneous
  Country: US (occurrence: US)
  Receive Date: 20130910
  Receipt Date: 20130910
  Transmission Date: 20140515
  Serious: Yes (Other)
  Sender: FDA-Public Use
  Company Number: US-ELI_LILLY_AND_COMPANY-US201309000919

PATIENT
  Sex: Male

DRUGS (7)
  1. HUMALOG LISPRO [Suspect]
     Dosage: UNK, PRN
  2. KLONOPIN [Concomitant]
     Dosage: 0.5 MG, BID
  3. KEPPRA [Concomitant]
     Dosage: 750 MG, QD
  4. KEPPRA [Concomitant]
     Dosage: 1000 MG, QD
  5. VIMPAT [Concomitant]
     Dosage: 100 MG, BID
  6. TRILEPTAL [Concomitant]
     Dosage: 600 MG, TID
  7. LANTUS [Concomitant]
     Dosage: 20 U, QD

REACTIONS (1)
  - Convulsion [Unknown]
